FAERS Safety Report 24580646 (Version 1)
Quarter: 2024Q4

REPORT INFORMATION
  Report Type: Spontaneous
  Country: US (occurrence: None)
  Receive Date: 20241105
  Receipt Date: 20241105
  Transmission Date: 20250115
  Serious: No
  Sender: Public
  Company Number: None

PATIENT
  Age: 28 Year
  Sex: Female

DRUGS (1)
  1. DUPIXENT [Suspect]
     Active Substance: DUPILUMAB
     Indication: Asthma
     Dosage: 300MG EVERY 2 WEEKS SUBCUTANEOUS?
     Route: 058
     Dates: start: 20240316, end: 20241001

REACTIONS (3)
  - Peripheral swelling [None]
  - Joint swelling [None]
  - Therapy cessation [None]

NARRATIVE: CASE EVENT DATE: 20240701
